FAERS Safety Report 11508206 (Version 1)
Quarter: 2015Q3

REPORT INFORMATION
  Report Type: Spontaneous
  Country: US (occurrence: None)
  Receive Date: 20150915
  Receipt Date: 20150915
  Transmission Date: 20151125
  Serious: No
  Sender: FDA-Public Use
  Company Number: ADR-2015-01642

PATIENT
  Age: 65 Year
  Sex: Female

DRUGS (2)
  1. CLONIDINE INTRATHECAL 181 MCG/ML [Suspect]
     Active Substance: CLONIDINE
     Dosage: 98.62 MCG/DAY
  2. COMPOUNDED BACLOFEN INTRATHECAL 506 MCG/ML [Suspect]
     Active Substance: BACLOFEN
     Indication: PAIN
     Dosage: 275.7 MCG/DAY

REACTIONS (2)
  - Pain [None]
  - Musculoskeletal stiffness [None]
